FAERS Safety Report 25348502 (Version 1)
Quarter: 2025Q2

REPORT INFORMATION
  Report Type: Spontaneous
  Country: US (occurrence: None)
  Receive Date: 20250520
  Receipt Date: 20250520
  Transmission Date: 20250717
  Serious: No
  Sender: FDA-CTU
  Company Number: None

PATIENT
  Age: 65 Year
  Sex: Male

DRUGS (8)
  1. BOSULIF [Suspect]
     Active Substance: BOSUTINIB MONOHYDRATE
     Dosage: FREQUENCY : DAILY;?
     Route: 048
     Dates: start: 20250124
  2. SPRYCEL [Suspect]
     Active Substance: DASATINIB
  3. IMATINIB [Suspect]
     Active Substance: IMATINIB
  4. PREDNISONE [Suspect]
     Active Substance: PREDNISONE
  5. JARDIANCE [Suspect]
     Active Substance: EMPAGLIFLOZIN
  6. PENICILLIN [Suspect]
     Active Substance: PENICILLIN
  7. SPRYCEL [Concomitant]
     Active Substance: DASATINIB
  8. IMATINIB [Concomitant]
     Active Substance: IMATINIB

REACTIONS (3)
  - Pneumonia [None]
  - Atrial fibrillation [None]
  - Glycosylated haemoglobin increased [None]

NARRATIVE: CASE EVENT DATE: 20250519
